FAERS Safety Report 4365793-0 (Version None)
Quarter: 2004Q2

REPORT INFORMATION
  Report Type: 
  Country: None (occurrence: None)
  Receive Date: 20040520
  Receipt Date: 20040504
  Transmission Date: 20050107
  Serious: Yes (Hospitalization)
  Sender: FDA-Public Use
  Company Number: 2004AC00101

PATIENT
  Age: 51 Year
  Sex: Female

DRUGS (1)
  1. TAMOXIFEN CITRATE [Suspect]
     Indication: BREAST CANCER
     Dosage: 10 MG BID
     Dates: start: 20011101

REACTIONS (5)
  - DYSPNOEA [None]
  - GOITRE [None]
  - POST PROCEDURAL COMPLICATION [None]
  - RADIATION INJURY [None]
  - THYMOMA MALIGNANT [None]
